FAERS Safety Report 21796168 (Version 2)
Quarter: 2023Q1

REPORT INFORMATION
  Report Type: Spontaneous
  Country: US (occurrence: US)
  Receive Date: 20221229
  Receipt Date: 20230111
  Transmission Date: 20230418
  Serious: Yes (Hospitalization, Other)
  Sender: FDA-Public Use
  Company Number: US-TEVA-2022-US-2839338

PATIENT
  Sex: Male

DRUGS (4)
  1. METHOTREXATE [Suspect]
     Active Substance: METHOTREXATE
     Indication: B precursor type acute leukaemia
     Dosage: RECEIVED FULL DOSING UNDER MAINTENANCE CYCLE
     Route: 037
  2. MERCAPTOPURINE [Suspect]
     Active Substance: MERCAPTOPURINE
     Indication: B precursor type acute leukaemia
     Dosage: RECEIVED FULL DOSING UNDER MAINTENANCE CYCLE
     Route: 065
  3. MERCAPTOPURINE [Suspect]
     Active Substance: MERCAPTOPURINE
     Dosage: RECEIVED IN THE MORNING UNDER MAINTENANCE CYCLE
     Route: 065
  4. CYTARABINE [Concomitant]
     Active Substance: CYTARABINE
     Indication: B precursor type acute leukaemia
     Dosage: RECEIVED FULL DOSING UNDER MAINTENANCE CYCLE
     Route: 037

REACTIONS (9)
  - Purine metabolism disorder [Recovering/Resolving]
  - Alanine aminotransferase increased [Unknown]
  - Mental status changes [Unknown]
  - Seizure [Unknown]
  - Nausea [Recovered/Resolved]
  - Vomiting [Recovered/Resolved]
  - Irritability [Recovered/Resolved]
  - Sluggishness [Recovered/Resolved]
  - Rash [Recovered/Resolved]
